FAERS Safety Report 9489992 (Version 2)
Quarter: 2013Q4

REPORT INFORMATION
  Report Type: Spontaneous
  Country: FR (occurrence: FR)
  Receive Date: 20130829
  Receipt Date: 20131001
  Transmission Date: 20140711
  Serious: Yes (Disabling)
  Sender: FDA-Public Use
  Company Number: ALCN2013FR004352

PATIENT
  Sex: Male

DRUGS (1)
  1. TOBRADEX [Suspect]
     Indication: POSTOPERATIVE CARE
     Dosage: 1 GTT, TID
     Route: 047
     Dates: start: 201305, end: 20130821

REACTIONS (3)
  - Deafness [Not Recovered/Not Resolved]
  - Ear pain [Not Recovered/Not Resolved]
  - Ear discomfort [Not Recovered/Not Resolved]
